FAERS Safety Report 7248129-7 (Version None)
Quarter: 2011Q1

REPORT INFORMATION
  Report Type: 
  Country: None (occurrence: None)
  Receive Date: 20110127
  Receipt Date: 20110119
  Transmission Date: 20110831
  Serious: Yes (Hospitalization, Other)
  Sender: FDA-Public Use
  Company Number: US-JNJFOC-20100809277

PATIENT
  Sex: Male
  Weight: 81.19 kg

DRUGS (7)
  1. REMICADE [Suspect]
     Indication: ANKYLOSING SPONDYLITIS
     Route: 042
  2. METFORMIN [Concomitant]
  3. LISINOPRIL [Concomitant]
  4. AMBIEN [Concomitant]
  5. OXYBUTYNIN [Concomitant]
  6. OMEPRAZOLE [Concomitant]
  7. PRAVACHOL [Concomitant]

REACTIONS (2)
  - BLADDER TRANSITIONAL CELL CARCINOMA [None]
  - BLADDER DYSPLASIA [None]
